FAERS Safety Report 10227698 (Version 1)
Quarter: 2014Q2

REPORT INFORMATION
  Report Type: Spontaneous
  Country: US (occurrence: None)
  Receive Date: 20140606
  Receipt Date: 20140606
  Transmission Date: 20141212
  Serious: No
  Sender: FDA-Public Use
  Company Number: TTX201400015

PATIENT
  Age: 48 Year
  Sex: Male

DRUGS (2)
  1. MARQIBO (VINCRISTINE SULFATE LIPOSOME INJECTION) [Suspect]
     Indication: ACUTE LYMPHOCYTIC LEUKAEMIA
     Route: 042
     Dates: start: 20140117
  2. MARQIBO (VINCRISTINE SULFATE LIPOSOME INJECTION) [Suspect]
     Indication: DISEASE RECURRENCE
     Route: 042
     Dates: start: 20140117

REACTIONS (2)
  - Blood bilirubin increased [None]
  - Neutropenia [None]
